FAERS Safety Report 25759743 (Version 1)
Quarter: 2025Q3

REPORT INFORMATION
  Report Type: Report from Study
  Country: GB (occurrence: GB)
  Receive Date: 20250904
  Receipt Date: 20250904
  Transmission Date: 20251021
  Serious: Yes (Other)
  Sender: NOVARTIS
  Company Number: GB-002147023-NVSC2025GB078202

PATIENT
  Sex: Female

DRUGS (1)
  1. KESIMPTA [Suspect]
     Active Substance: OFATUMUMAB
     Indication: Relapsing-remitting multiple sclerosis
     Dosage: 20 MG, QMO
     Route: 058
     Dates: start: 20240903

REACTIONS (5)
  - Lower respiratory tract infection [Recovered/Resolved]
  - Malaise [Unknown]
  - Mobility decreased [Not Recovered/Not Resolved]
  - Balance disorder [Unknown]
  - Fall [Unknown]
